FAERS Safety Report 7822912-9 (Version None)
Quarter: 2011Q4

REPORT INFORMATION
  Report Type: 
  Country: None (occurrence: None)
  Receive Date: 20111018
  Receipt Date: 20110427
  Transmission Date: 20120403
  Serious: No
  Sender: FDA-Public Use
  Company Number: US-ASTRAZENECA-2011SE25020

PATIENT
  Age: 56 Year
  Sex: Female
  Weight: 136.1 kg

DRUGS (1)
  1. SYMBICORT [Suspect]
     Dosage: 80/4.5 2 PUFFS BID
     Route: 055

REACTIONS (1)
  - DIABETES MELLITUS [None]
